FAERS Safety Report 19507337 (Version 8)
Quarter: 2022Q1

REPORT INFORMATION
  Report Type: Report from Study
  Country: DE (occurrence: None)
  Receive Date: 20210708
  Receipt Date: 20220216
  Transmission Date: 20220423
  Serious: Yes (Hospitalization)
  Sender: FDA-Public Use
  Company Number: DE-EISAI MEDICAL RESEARCH-EC-2021-095667

PATIENT
  Age: 59 Year
  Sex: Male
  Weight: 62.4 kg

DRUGS (21)
  1. LENVATINIB [Suspect]
     Active Substance: LENVATINIB
     Indication: Non-small cell lung cancer
     Dosage: STARTING DOSE AT 24 MG, FLUCTUATED DOSAGE
     Route: 048
     Dates: start: 20201221, end: 20210628
  2. LENVATINIB [Suspect]
     Active Substance: LENVATINIB
     Route: 048
     Dates: start: 20210629, end: 20210629
  3. RAMIPRIL [Concomitant]
     Active Substance: RAMIPRIL
     Dates: start: 201812
  4. BISOPROLOL [Concomitant]
     Active Substance: BISOPROLOL
     Dates: start: 201903
  5. OLODATEROL HYDROCHLORIDE\TIOTROPIUM BROMIDE MONOHYDRATE [Concomitant]
     Active Substance: OLODATEROL HYDROCHLORIDE\TIOTROPIUM BROMIDE MONOHYDRATE
     Dates: start: 201904
  6. PANTOPRAZOLE [Concomitant]
     Active Substance: PANTOPRAZOLE
     Dates: start: 202004
  7. METAMIZOLE [Concomitant]
     Active Substance: METAMIZOLE
     Dates: start: 202006
  8. FENTANYL [Concomitant]
     Active Substance: FENTANYL
     Dates: start: 20210408, end: 20210720
  9. FENTANYL [Concomitant]
     Active Substance: FENTANYL
     Dates: start: 20210408
  10. MOVICOL [Concomitant]
     Active Substance: POLYETHYLENE GLYCOL 3350\POTASSIUM CHLORIDE\SODIUM BICARBONATE\SODIUM CHLORIDE
     Route: 048
     Dates: start: 20210103
  11. FENOTEROL HYDROBROMIDE\IPRATROPIUM BROMIDE [Concomitant]
     Active Substance: FENOTEROL HYDROBROMIDE\IPRATROPIUM BROMIDE
     Dates: start: 20210103
  12. CALCIUM [Concomitant]
     Active Substance: CALCIUM
     Dates: start: 20210110
  13. NITRENDIPINE [Concomitant]
     Active Substance: NITRENDIPINE
     Dates: start: 20210117
  14. MOXONIDINE [Concomitant]
     Active Substance: MOXONIDINE
     Dates: start: 20210118
  15. LERCANIDIPINE HYDROCHLORIDE [Concomitant]
     Active Substance: LERCANIDIPINE HYDROCHLORIDE
     Dates: start: 20210121
  16. ZOPICLONE [Concomitant]
     Active Substance: ZOPICLONE
     Dates: start: 20210121
  17. SERTRALINE HYDROCHLORIDE [Concomitant]
     Active Substance: SERTRALINE HYDROCHLORIDE
     Dates: start: 20210225
  18. METHYLPREDNISOLONE ACEPONATE [Concomitant]
     Active Substance: METHYLPREDNISOLONE ACEPONATE
     Dates: start: 20210305
  19. CETIRIZINE HYDROCHLORIDE [Concomitant]
     Active Substance: CETIRIZINE HYDROCHLORIDE
     Dates: start: 20210316
  20. LORAZEPAM [Concomitant]
     Active Substance: LORAZEPAM
     Dosage: WAFER
     Dates: start: 20210501
  21. XGEVA [Concomitant]
     Active Substance: DENOSUMAB
     Dates: start: 20210519

REACTIONS (1)
  - Dehydration [Recovered/Resolved]

NARRATIVE: CASE EVENT DATE: 20210630
